FAERS Safety Report 9524455 (Version 1)
Quarter: 2013Q3

REPORT INFORMATION
  Report Type: Spontaneous
  Country: US (occurrence: US)
  Receive Date: 20130916
  Receipt Date: 20130916
  Transmission Date: 20140515
  Serious: No
  Sender: FDA-Public Use
  Company Number: US-PFIZER INC-2013262560

PATIENT
  Age: 20 Year
  Sex: 0

DRUGS (2)
  1. ZOLOFT [Suspect]
     Dosage: UNK
  2. RISPERIDONE [Suspect]
     Dosage: UNK

REACTIONS (1)
  - Dysphemia [Unknown]
